FAERS Safety Report 4955844-4 (Version None)
Quarter: 2006Q1

REPORT INFORMATION
  Report Type: 
  Country: None (occurrence: None)
  Receive Date: 20060327
  Receipt Date: 20060327
  Transmission Date: 20060701
  Serious: Yes (Death)
  Sender: FDA-Public Use
  Company Number: None

PATIENT
  Age: 17 Year
  Sex: Male

DRUGS (1)
  1. STREPTOMYCIN [Suspect]
     Indication: BUBONIC PLAGUE
     Dosage: 0.5 G Q 4 HOURS
     Dates: start: 20060210, end: 20060211

REACTIONS (15)
  - ARRHYTHMIA [None]
  - BLOOD CREATININE INCREASED [None]
  - BUBONIC PLAGUE [None]
  - DEHYDRATION [None]
  - DIALYSIS [None]
  - HAEMATURIA [None]
  - HEART RATE INCREASED [None]
  - HYPERKALAEMIA [None]
  - HYPOVOLAEMIA [None]
  - METABOLIC ACIDOSIS [None]
  - OLIGURIA [None]
  - RENAL FAILURE [None]
  - RENAL FAILURE ACUTE [None]
  - RESPIRATORY RATE INCREASED [None]
  - URINE OUTPUT DECREASED [None]
